FAERS Safety Report 17826672 (Version 2)
Quarter: 2020Q2

REPORT INFORMATION
  Report Type: Spontaneous
  Country: US (occurrence: US)
  Receive Date: 20200526
  Receipt Date: 20200531
  Transmission Date: 20200714
  Serious: Yes (Death, Other)
  Sender: FDA-Public Use
  Company Number: US-009507513-LUS-103139-US

PATIENT
  Age: 70 Year
  Sex: Male

DRUGS (1)
  1. TICE BCG [Suspect]
     Active Substance: BACILLUS CALMETTE-GUERIN SUBSTRAIN TICE LIVE ANTIGEN
     Indication: BLADDER TRANSITIONAL CELL CARCINOMA STAGE III
     Dosage: DOSE TEXT: 4 INSTILLATIONS, CONTINUING: NO, AS USED: 1 CFU
     Route: 043

REACTIONS (1)
  - Sepsis [Fatal]
